FAERS Safety Report 17874464 (Version 1)
Quarter: 2020Q2

REPORT INFORMATION
  Report Type: Spontaneous
  Country: GB (occurrence: GB)
  Receive Date: 20200609
  Receipt Date: 20200609
  Transmission Date: 20200714
  Serious: Yes (Other)
  Sender: FDA-Public Use
  Company Number: GB-B.I. PHARMACEUTICALS,INC./RIDGEFIELD-2020-12-027788

PATIENT
  Age: 58 Year
  Sex: Male

DRUGS (3)
  1. RALTEGRAVIR POTASSIUM [Suspect]
     Active Substance: RALTEGRAVIR POTASSIUM
     Indication: PRODUCT USED FOR UNKNOWN INDICATION
     Dosage: STRENGTH: 400 (UNITS NOT PROVIDED), ONCE DAILY
     Route: 048
  2. LAMIVUDINE. [Suspect]
     Active Substance: LAMIVUDINE
     Indication: PRODUCT USED FOR UNKNOWN INDICATION
     Dosage: STRENGTH:300(UNITS NOT PROVIDED), ONCE DAILY
     Route: 065
  3. VIRAMUNE [Suspect]
     Active Substance: NEVIRAPINE
     Indication: PRODUCT USED FOR UNKNOWN INDICATION
     Dosage: STRENGTH: 200 (UNITS NOT PROVIDED), ONCE DAILY
     Route: 065

REACTIONS (7)
  - Asthenia [Unknown]
  - Malaise [Unknown]
  - Delirium [Unknown]
  - Cough [Unknown]
  - Pyrexia [Unknown]
  - Hallucination [Unknown]
  - Fatigue [Unknown]

NARRATIVE: CASE EVENT DATE: 2020
